FAERS Safety Report 9305223 (Version 1)
Quarter: 2013Q2

REPORT INFORMATION
  Report Type: Spontaneous
  Country: US (occurrence: US)
  Receive Date: 20130523
  Receipt Date: 20130523
  Transmission Date: 20140414
  Serious: Yes (Other)
  Sender: FDA-Public Use
  Company Number: US-JNJFOC-20130513695

PATIENT
  Age: 41 Year
  Sex: Female

DRUGS (5)
  1. INFLIXIMAB, RECOMBINANT [Suspect]
     Indication: CROHN^S DISEASE
     Route: 042
     Dates: start: 200901
  2. INFLIXIMAB, RECOMBINANT [Suspect]
     Indication: CROHN^S DISEASE
     Route: 042
     Dates: start: 2001, end: 2003
  3. MESALAMINE [Concomitant]
     Indication: CROHN^S DISEASE
     Route: 065
  4. 6-MP [Concomitant]
     Indication: CROHN^S DISEASE
     Route: 065
  5. PREDNISONE [Concomitant]
     Indication: CROHN^S DISEASE
     Dosage: FOR 6-8 WEEKS AT LEAST ONCE A YEAR
     Route: 065

REACTIONS (1)
  - Systemic lupus erythematosus [Recovered/Resolved]
